FAERS Safety Report 7318556-8 (Version None)
Quarter: 2011Q1

REPORT INFORMATION
  Report Type: 
  Country: None (occurrence: None)
  Receive Date: 20110228
  Receipt Date: 20110215
  Transmission Date: 20110831
  Serious: Yes (Death, Other)
  Sender: FDA-Public Use
  Company Number: DE-JNJFOC-20110204901

PATIENT
  Age: 74 Year
  Sex: Male

DRUGS (8)
  1. ETANERCEPT [Concomitant]
  2. CYCLOSPORINE [Concomitant]
  3. CYCLOPHOSPHAMIDE [Concomitant]
  4. LEFLUNOMIDE [Concomitant]
  5. METHOTREXATE [Concomitant]
  6. CORTICOSTEROIDS [Concomitant]
  7. GOLD [Concomitant]
  8. INFLIXIMAB, RECOMBINANT [Suspect]
     Indication: PRODUCT USED FOR UNKNOWN INDICATION
     Route: 042

REACTIONS (6)
  - IMMUNE RECONSTITUTION SYNDROME [None]
  - OSTEOPOROSIS [None]
  - MYOCARDIAL INFARCTION [None]
  - WHIPPLE'S DISEASE [None]
  - DEATH [None]
  - CEREBROVASCULAR ACCIDENT [None]
